FAERS Safety Report 4725716-9 (Version None)
Quarter: 2005Q3

REPORT INFORMATION
  Report Type: 
  Country: None (occurrence: None)
  Receive Date: 20050722
  Receipt Date: 20050722
  Transmission Date: 20060218
  Serious: Yes (Hospitalization)
  Sender: FDA-Public Use
  Company Number: None

PATIENT
  Age: 62 Year
  Sex: Male
  Weight: 81 kg

DRUGS (2)
  1. TORADOL [Suspect]
     Dosage: 15 MG ONCE INTRAVENOUS
     Route: 042
     Dates: start: 20050314, end: 20050314
  2. . [Concomitant]

REACTIONS (1)
  - ANAPHYLACTIC REACTION [None]
